FAERS Safety Report 15854451 (Version 2)
Quarter: 2019Q1

REPORT INFORMATION
  Report Type: Report from Study
  Country: None (occurrence: TR)
  Receive Date: 20190122
  Receipt Date: 20190208
  Transmission Date: 20190417
  Serious: Yes (Other)
  Sender: FDA-Public Use
  Company Number: TR-ABBVIE-19S-161-2631872-00

PATIENT
  Age: 74 Year
  Sex: Male
  Weight: 75 kg

DRUGS (7)
  1. SEROQUEL [Concomitant]
     Active Substance: QUETIAPINE FUMARATE
     Indication: PARKINSON^S DISEASE
     Route: 048
  2. DOPADEX SR [Concomitant]
     Indication: PARKINSON^S DISEASE
     Route: 048
  3. RASALAS [Concomitant]
     Indication: PARKINSON^S DISEASE
     Route: 048
  4. DUODOPA [Suspect]
     Active Substance: CARBIDOPA\LEVODOPA
     Indication: PARKINSON^S DISEASE
     Dosage: MD: 9.80 ML CD: 4.00 ML ED: 1.00 ML
     Route: 050
     Dates: start: 20190116, end: 20190118
  5. DUODOPA [Suspect]
     Active Substance: CARBIDOPA\LEVODOPA
     Route: 050
     Dates: start: 20190121
  6. DESYREL [Concomitant]
     Active Substance: TRAZODONE HYDROCHLORIDE
     Indication: SLEEP DISORDER
     Route: 048
  7. SECITA [Concomitant]
     Indication: DEPRESSION
     Route: 048

REACTIONS (1)
  - Haemoglobin decreased [Recovered/Resolved]

NARRATIVE: CASE EVENT DATE: 20190118
